FAERS Safety Report 25979154 (Version 2)
Quarter: 2025Q4

REPORT INFORMATION
  Report Type: Spontaneous
  Country: JP (occurrence: JP)
  Receive Date: 20251030
  Receipt Date: 20251114
  Transmission Date: 20260118
  Serious: Yes (Hospitalization, Other)
  Sender: COSETTE PHARMACEUTICALS INC
  Company Number: JP-DialogSolutions-SAAVPROD-PI831887-C1

PATIENT
  Age: 40 Year
  Sex: Male

DRUGS (22)
  1. AMBIEN [Suspect]
     Active Substance: ZOLPIDEM TARTRATE
     Indication: Depression
     Route: 065
  2. AMBIEN [Suspect]
     Active Substance: ZOLPIDEM TARTRATE
     Indication: Bipolar disorder
  3. LITHIUM CARBONATE [Suspect]
     Active Substance: LITHIUM CARBONATE
     Indication: Depression
     Route: 065
  4. LITHIUM CARBONATE [Suspect]
     Active Substance: LITHIUM CARBONATE
     Indication: Bipolar disorder
  5. IBUPROFEN [Suspect]
     Active Substance: IBUPROFEN
     Indication: Product used for unknown indication
     Route: 065
  6. BROMAZEPAM [Suspect]
     Active Substance: BROMAZEPAM
     Indication: Bipolar disorder
     Route: 065
  7. BROMAZEPAM [Suspect]
     Active Substance: BROMAZEPAM
     Route: 065
  8. BROMAZEPAM [Suspect]
     Active Substance: BROMAZEPAM
     Route: 065
  9. ARIPIPRAZOLE [Suspect]
     Active Substance: ARIPIPRAZOLE
     Indication: Bipolar disorder
     Route: 065
  10. ARIPIPRAZOLE [Suspect]
     Active Substance: ARIPIPRAZOLE
     Indication: Depression
  11. QUETIAPINE FUMARATE [Suspect]
     Active Substance: QUETIAPINE FUMARATE
     Indication: Depression
     Route: 065
  12. QUETIAPINE FUMARATE [Suspect]
     Active Substance: QUETIAPINE FUMARATE
     Indication: Bipolar disorder
  13. AMITRIPTYLINE HYDROCHLORIDE [Suspect]
     Active Substance: AMITRIPTYLINE HYDROCHLORIDE
     Indication: Bipolar disorder
     Route: 065
  14. AMITRIPTYLINE HYDROCHLORIDE [Suspect]
     Active Substance: AMITRIPTYLINE HYDROCHLORIDE
     Indication: Depression
     Route: 065
  15. TRIAZOLAM [Suspect]
     Active Substance: TRIAZOLAM
     Indication: Bipolar disorder
     Route: 065
  16. TRIAZOLAM [Suspect]
     Active Substance: TRIAZOLAM
     Indication: Depression
  17. CLOXAZOLAM [Suspect]
     Active Substance: CLOXAZOLAM
     Indication: Depression
     Route: 065
  18. CLOXAZOLAM [Suspect]
     Active Substance: CLOXAZOLAM
     Indication: Bipolar disorder
  19. MIANSERIN [Suspect]
     Active Substance: MIANSERIN
     Indication: Bipolar disorder
     Dosage: 10 MG
     Route: 065
  20. MIANSERIN [Suspect]
     Active Substance: MIANSERIN
     Indication: Depression
  21. OLANZAPINE [Suspect]
     Active Substance: OLANZAPINE
     Indication: Bipolar disorder
     Route: 065
  22. OLANZAPINE [Suspect]
     Active Substance: OLANZAPINE
     Indication: Depression

REACTIONS (10)
  - Altered state of consciousness [Recovering/Resolving]
  - Nystagmus [Recovering/Resolving]
  - Vestibular disorder [Recovering/Resolving]
  - IIIrd nerve disorder [Recovering/Resolving]
  - Dizziness [Recovering/Resolving]
  - Dysarthria [Recovering/Resolving]
  - Gait disturbance [Recovering/Resolving]
  - Vertigo [Recovering/Resolving]
  - Drug interaction [Recovering/Resolving]
  - Product use in unapproved indication [Unknown]
